FAERS Safety Report 23051703 (Version 1)
Quarter: 2023Q4

REPORT INFORMATION
  Report Type: Spontaneous
  Country: US (occurrence: US)
  Receive Date: 20231010
  Receipt Date: 20231010
  Transmission Date: 20240109
  Serious: No
  Sender: FDA-Public Use
  Company Number: US-Sprout Pharmaceuticals, Inc.-2023SP000174

PATIENT
  Age: 54 Year
  Sex: Female
  Weight: 59.02 kg

DRUGS (1)
  1. ADDYI [Suspect]
     Active Substance: FLIBANSERIN
     Indication: Libido disorder
     Route: 048
     Dates: start: 20230508

REACTIONS (4)
  - Headache [Recovered/Resolved]
  - Chest discomfort [Recovered/Resolved]
  - Product use issue [Recovered/Resolved]
  - Dizziness [Recovered/Resolved]

NARRATIVE: CASE EVENT DATE: 20230501
